FAERS Safety Report 21762638 (Version 10)
Quarter: 2023Q2

REPORT INFORMATION
  Report Type: Report from Study
  Country: JP (occurrence: JP)
  Receive Date: 20221221
  Receipt Date: 20230622
  Transmission Date: 20230721
  Serious: Yes (Hospitalization, Other)
  Sender: FDA-Public Use
  Company Number: JP-ONO-2022JP033659

PATIENT
  Age: 60 Year
  Sex: Male
  Weight: 71.7 kg

DRUGS (26)
  1. BRAFTOVI [Suspect]
     Active Substance: ENCORAFENIB
     Indication: Colon cancer
     Dosage: 300 MG, EVERYDAY
     Route: 048
     Dates: start: 20221110, end: 20221207
  2. BRAFTOVI [Suspect]
     Active Substance: ENCORAFENIB
     Dosage: 300 MG, EVERYDAY
     Route: 048
     Dates: start: 20230110, end: 20230214
  3. MEKTOVI [Suspect]
     Active Substance: BINIMETINIB
     Indication: Colon cancer
     Dosage: 90 MG, EVERYDAY
     Route: 048
     Dates: start: 20221110, end: 20221207
  4. ANAMORELIN HYDROCHLORIDE [Suspect]
     Active Substance: ANAMORELIN HYDROCHLORIDE
     Indication: Cachexia
     Dosage: 100 MG, EVERYDAY
     Route: 048
  5. CETUXIMAB [Suspect]
     Active Substance: CETUXIMAB
     Indication: Colon cancer
     Dosage: 400 MG/M2
     Route: 065
     Dates: start: 20221110, end: 20221110
  6. CETUXIMAB [Suspect]
     Active Substance: CETUXIMAB
     Dosage: 250 MG/M2
     Route: 065
     Dates: start: 20221117, end: 20221124
  7. CETUXIMAB [Suspect]
     Active Substance: CETUXIMAB
     Dosage: 250 MG/M2
     Route: 065
     Dates: start: 20230111, end: 20230126
  8. ASPIRIN [Concomitant]
     Active Substance: ASPIRIN
     Dosage: 100 MG, EVERYDAY
     Route: 048
  9. REBAMIPIDE [Concomitant]
     Active Substance: REBAMIPIDE
     Dosage: 100 MG
     Route: 048
  10. ROSUVASTATIN CALCIUM [Concomitant]
     Active Substance: ROSUVASTATIN CALCIUM
     Dosage: 5 MG, EVERYDAY, ORALLY DISINTEGRATING
     Route: 048
  11. SHAKUYAKUKANZOTO [Concomitant]
     Active Substance: HERBALS
     Dosage: 2.5 G, Q8H
     Route: 065
  12. NASONEX [Concomitant]
     Active Substance: MOMETASONE FUROATE
     Dosage: UNK, 2 SPRAYS PER DOSE[NASAL DROP (NASAL SPRAY TOO)]
     Route: 045
  13. URIEF OD [Concomitant]
     Dosage: 4 MG, Q12H, ORALLY DISINTEGRATING
     Route: 048
  14. VIBEGRON [Concomitant]
     Active Substance: VIBEGRON
     Dosage: 50 MG, EVERYDAY
     Route: 048
  15. SODIUM GUALENATE MONOHYDRATE [Concomitant]
     Active Substance: SODIUM GUALENATE MONOHYDRATE
     Dosage: UNK
     Route: 065
  16. GLYCOSAMINOGLYCANS [Concomitant]
     Active Substance: GLYCOSAMINOGLYCANS
     Dosage: UNK [LOTION (EXCEPT LOTION FOR EYE]
     Route: 061
  17. CLOBETASOL [Concomitant]
     Active Substance: CLOBETASOL
     Dosage: UNK [OINTMENT, CREAM]
     Route: 061
  18. VIBRAMYCIN [Concomitant]
     Active Substance: DOXYCYCLINE
     Dosage: 100 MG, EVERYDAY
     Route: 048
  19. LIORESAL [Concomitant]
     Active Substance: BACLOFEN
     Dosage: 10 MG, Q8H
     Route: 048
  20. LIORESAL [Concomitant]
     Active Substance: BACLOFEN
     Dosage: 10 MG, Q12H
     Route: 048
  21. CELECOXIB [Concomitant]
     Active Substance: CELECOXIB
     Dosage: 200 MG, Q12H
     Route: 048
  22. AVELOX [Concomitant]
     Active Substance: MOXIFLOXACIN HYDROCHLORIDE
     Dosage: 400 MG, EVERYDAY
     Route: 048
  23. HYDREA [Concomitant]
     Active Substance: HYDROXYUREA
     Dosage: 1000 MG, Q12H
     Route: 048
  24. LANSOPRAZOLE [Concomitant]
     Active Substance: LANSOPRAZOLE
     Dosage: 15 MG, EVERYDAY (ORALLY DISINTEGRATING)
     Route: 048
  25. HERBALS [Concomitant]
     Active Substance: HERBALS
     Dosage: 2.5 G, Q8H
     Route: 065
  26. AGRYLIN [Concomitant]
     Active Substance: ANAGRELIDE HYDROCHLORIDE
     Dosage: 0.5 MG, Q12H
     Route: 048

REACTIONS (16)
  - Dehydration [Unknown]
  - Renal impairment [Unknown]
  - Dehydration [Unknown]
  - Renal impairment [Unknown]
  - Stomatitis [Recovered/Resolved]
  - Subdural haematoma [Recovered/Resolved]
  - Decreased appetite [Recovered/Resolved]
  - Fall [Recovered/Resolved]
  - Dry skin [Not Recovered/Not Resolved]
  - Hypophagia [Unknown]
  - Pain [Unknown]
  - Pyrexia [Unknown]
  - Contusion [Unknown]
  - Skin fissures [Recovered/Resolved]
  - Hiccups [Not Recovered/Not Resolved]
  - Off label use [Unknown]

NARRATIVE: CASE EVENT DATE: 20221110
